FAERS Safety Report 19454586 (Version 6)
Quarter: 2021Q4

REPORT INFORMATION
  Report Type: Spontaneous
  Country: US (occurrence: US)
  Receive Date: 20210623
  Receipt Date: 20211013
  Transmission Date: 20220303
  Serious: Yes (Hospitalization, Other)
  Sender: FDA-Public Use
  Company Number: US-BIOMARINAP-US-2021-137145

PATIENT
  Age: 15 Year
  Sex: Male
  Weight: 53.9 kg

DRUGS (1)
  1. VIMIZIM [Suspect]
     Active Substance: ELOSULFASE ALFA
     Indication: Mucopolysaccharidosis IV
     Dosage: 100 MILLIGRAM, QW
     Route: 042
     Dates: start: 20160323

REACTIONS (13)
  - Acute respiratory failure [Unknown]
  - Hypoxia [Unknown]
  - Hypercapnia [Unknown]
  - Respiratory distress [Unknown]
  - Sepsis [Unknown]
  - Asthenia [Unknown]
  - Sensory loss [Unknown]
  - Pulmonary hypertension [Unknown]
  - Acute kidney injury [Recovering/Resolving]
  - Oxygen saturation decreased [Recovering/Resolving]
  - Atelectasis [Unknown]
  - Restrictive pulmonary disease [Unknown]
  - Endotracheal intubation complication [Unknown]

NARRATIVE: CASE EVENT DATE: 20210618
